FAERS Safety Report 9437560 (Version 1)
Quarter: 2013Q3

REPORT INFORMATION
  Report Type: Spontaneous
  Country: FR (occurrence: FR)
  Receive Date: 20130802
  Receipt Date: 20130802
  Transmission Date: 20140515
  Serious: Yes (Hospitalization)
  Sender: FDA-Public Use
  Company Number: FR-SHIRE-ALL1-2013-05125

PATIENT
  Age: 41 Year
  Sex: Male

DRUGS (9)
  1. MIDON [Suspect]
     Indication: HYPOTENSION
     Dosage: 5 MG, 2X/DAY:BID
     Route: 048
     Dates: start: 20130212, end: 20130401
  2. RISPERIDONE [Suspect]
     Indication: SCHIZOPHRENIA
     Dosage: 2 MG, UNKNOWN
     Route: 048
     Dates: start: 20121214, end: 20130322
  3. CLOZAPINE [Suspect]
     Indication: SCHIZOPHRENIA
     Dosage: 25 MG, 2X/DAY:BID
     Route: 048
     Dates: start: 20130213, end: 20130322
  4. CLOZAPINE [Suspect]
     Dosage: 100 MG, UNKNOWN
     Route: 048
     Dates: start: 20130204, end: 201302
  5. CLOZAPINE [Suspect]
     Dosage: UNK UNK, UNKNOWN
     Route: 048
  6. MACROGOL [Suspect]
     Indication: PRODUCT USED FOR UNKNOWN INDICATION
     Dosage: UNK, UNKNOWN
     Route: 048
     Dates: start: 201303, end: 20130416
  7. LEPTICUR [Concomitant]
     Indication: PRODUCT USED FOR UNKNOWN INDICATION
     Dosage: UNK, UNKNOWN
     Route: 048
     Dates: start: 20120104
  8. HEPTAMINOL [Concomitant]
     Indication: PRODUCT USED FOR UNKNOWN INDICATION
     Dosage: UNK, UNKNOWN
     Route: 048
     Dates: start: 20130211
  9. VALIUM [Concomitant]
     Indication: SCHIZOPHRENIA
     Dosage: UNK, UNKNOWN
     Route: 065
     Dates: start: 20130102

REACTIONS (1)
  - Agranulocytosis [Recovered/Resolved]
